FAERS Safety Report 4989570-2 (Version None)
Quarter: 2006Q2

REPORT INFORMATION
  Report Type: 
  Country: None (occurrence: None)
  Receive Date: 20060426
  Receipt Date: 20060413
  Transmission Date: 20061013
  Serious: Yes (Hospitalization, Other)
  Sender: FDA-Public Use
  Company Number: 2006054398

PATIENT
  Sex: Male
  Weight: 68.0396 kg

DRUGS (9)
  1. DETROL LA [Suspect]
     Indication: INCONTINENCE
     Dosage: 4 MG (4 MG, 1 IN 1 D), ORAL
     Route: 048
  2. INDOMETHACIN [Suspect]
     Indication: GOUT
     Dosage: 50 MG
  3. ISOSORBIDE [Concomitant]
  4. LASIX [Concomitant]
  5. OXYGEN [Concomitant]
  6. IMDUR [Concomitant]
  7. TOPROL-XL [Concomitant]
  8. ZOCOR [Concomitant]
  9. XOPENEX [Concomitant]

REACTIONS (10)
  - CEREBROVASCULAR ACCIDENT [None]
  - COUGH [None]
  - DIVERTICULITIS [None]
  - DRY MOUTH [None]
  - GASTRIC HAEMORRHAGE [None]
  - GASTROOESOPHAGEAL REFLUX DISEASE [None]
  - GOUT [None]
  - PROCEDURAL COMPLICATION [None]
  - PROSTATIC OPERATION [None]
  - WEIGHT DECREASED [None]
